FAERS Safety Report 4305063-X (Version None)
Quarter: 2004Q1

REPORT INFORMATION
  Report Type: 
  Country: None (occurrence: None)
  Receive Date: 20040225
  Receipt Date: 20040225
  Transmission Date: 20041129
  Serious: Yes (Hospitalization)
  Sender: FDA-Public Use
  Company Number: None

PATIENT
  Age: 80 Year
  Sex: Male

DRUGS (11)
  1. EPTIFIBITIDE (INTEGRILIN) [Suspect]
     Indication: CORONARY ANGIOPLASTY
     Dates: start: 20030605
  2. CLOPIDOGREL 300 MG X 1 75 DAILY [Suspect]
     Indication: CORONARY ARTERY DISEASE
  3. CIPROFLOXCIN [Concomitant]
  4. AMLODIPINE [Concomitant]
  5. CIPROFLOXCIN [Concomitant]
  6. DIGOXIN [Concomitant]
  7. FUROSEMIDE [Concomitant]
  8. SERTRALINE HCL [Concomitant]
  9. SIMVASTATIN [Concomitant]
  10. TAMSULOSIN [Concomitant]
  11. ASPIRIN [Suspect]
     Indication: CORONARY ARTERY DISEASE

REACTIONS (2)
  - HAEMATURIA [None]
  - POST PROCEDURAL COMPLICATION [None]
